FAERS Safety Report 6310084-1 (Version None)
Quarter: 2009Q3

REPORT INFORMATION
  Report Type: 
  Country: None (occurrence: None)
  Receive Date: 20090814
  Receipt Date: 20090807
  Transmission Date: 20100115
  Serious: Yes (Other)
  Sender: FDA-Public Use
  Company Number: BR-ABBOTT-09P-020-0590274-00

PATIENT
  Sex: Female
  Weight: 88 kg

DRUGS (6)
  1. HUMIRA [Suspect]
     Indication: RHEUMATOID ARTHRITIS
     Route: 058
     Dates: start: 20070101
  2. DICLOFENAC SODIUM [Concomitant]
     Indication: RHEUMATOID ARTHRITIS
     Route: 048
     Dates: start: 19900101
  3. UNKNOWN MAGISTRAL FORMULA [Concomitant]
     Indication: RHEUMATOID ARTHRITIS
     Route: 048
     Dates: start: 19920101
  4. METHOTREXATE [Concomitant]
     Indication: RHEUMATOID ARTHRITIS
     Route: 048
  5. SIBUTRAMINE [Concomitant]
     Indication: WEIGHT DECREASED
     Route: 048
     Dates: start: 20090201
  6. UNKNOWN [Concomitant]
     Indication: METABOLIC DISORDER
     Route: 030
     Dates: start: 20090201

REACTIONS (3)
  - FALL [None]
  - PARAESTHESIA [None]
  - PROSTHESIS IMPLANTATION [None]
